FAERS Safety Report 5281076-9 (Version None)
Quarter: 2007Q1

REPORT INFORMATION
  Report Type: 
  Country: None (occurrence: None)
  Receive Date: 20061229
  Receipt Date: 20061004
  Transmission Date: 20070707
  Serious: Yes (Other)
  Sender: FDA-Public Use
  Company Number: 2006UW19263

PATIENT
  Age: 68 Year
  Sex: Female
  Weight: 78.017 kg

DRUGS (4)
  1. CRESTOR [Suspect]
     Indication: BLOOD CHOLESTEROL INCREASED
     Dosage: 5 MG QD PO
     Route: 048
     Dates: start: 20060905
  2. SYNTHROID [Concomitant]
  3. VITAMINS [Concomitant]
  4. FUROSEMIDE [Concomitant]

REACTIONS (3)
  - ABDOMINAL DISTENSION [None]
  - FLUID RETENTION [None]
  - WEIGHT INCREASED [None]
